FAERS Safety Report 7291323-X (Version None)
Quarter: 2011Q1

REPORT INFORMATION
  Report Type: 
  Country: None (occurrence: None)
  Receive Date: 20110214
  Receipt Date: 20110208
  Transmission Date: 20110831
  Serious: Yes (Other)
  Sender: FDA-Public Use
  Company Number: A0879668A

PATIENT
  Sex: Male

DRUGS (4)
  1. KALETRA [Suspect]
     Indication: HIV INFECTION
     Dosage: 4TAB PER DAY
     Route: 064
     Dates: start: 20100223, end: 20100601
  2. COMBIVIR [Suspect]
     Indication: HIV INFECTION
     Dosage: 2TAB PER DAY
     Route: 064
     Dates: start: 20100223
  3. AZT [Suspect]
     Route: 048
  4. KALETRA [Suspect]
     Dosage: 6U PER DAY
     Route: 064
     Dates: start: 20100602

REACTIONS (5)
  - HYPOREFLEXIA [None]
  - MACROCYTOSIS [None]
  - EATING DISORDER [None]
  - POOR SUCKING REFLEX [None]
  - DRUG EXPOSURE DURING PREGNANCY [None]
